FAERS Safety Report 10892056 (Version 1)
Quarter: 2015Q1

REPORT INFORMATION
  Report Type: Spontaneous
  Country: US (occurrence: US)
  Receive Date: 20150306
  Receipt Date: 20150306
  Transmission Date: 20150721
  Serious: Yes (Hospitalization, Other)
  Sender: FDA-Public Use
  Company Number: US-ASTRAZENECA-2015SE19617

PATIENT
  Sex: Female
  Weight: 38.6 kg

DRUGS (10)
  1. NITRO [Concomitant]
     Active Substance: NITROGLYCERIN
     Dosage: AS REQUIRED
  2. LISINOPRIL. [Suspect]
     Active Substance: LISINOPRIL
     Indication: PRODUCT USED FOR UNKNOWN INDICATION
     Route: 048
  3. OMEPRAZOLE. [Suspect]
     Active Substance: OMEPRAZOLE
     Indication: PRODUCT USED FOR UNKNOWN INDICATION
     Dosage: DAILY
     Route: 048
  4. LOVASTATIN. [Concomitant]
     Active Substance: LOVASTATIN
     Indication: BLOOD CHOLESTEROL ABNORMAL
  5. CALCIUM [Concomitant]
     Active Substance: CALCIUM
  6. METOPROLOL TART [Concomitant]
     Active Substance: METOPROLOL TARTRATE
     Indication: BLOOD PRESSURE ABNORMAL
  7. VITAMIN D [Concomitant]
     Active Substance: CHOLECALCIFEROL
  8. SEROQUEL [Suspect]
     Active Substance: QUETIAPINE FUMARATE
     Indication: PAIN
     Route: 048
     Dates: start: 201108, end: 201108
  9. SEROQUEL [Suspect]
     Active Substance: QUETIAPINE FUMARATE
     Indication: SLEEP DISORDER
     Route: 048
     Dates: start: 201108, end: 201108
  10. ASPIRIN. [Concomitant]
     Active Substance: ASPIRIN
     Indication: CARDIAC DISORDER

REACTIONS (7)
  - Feeling abnormal [Recovered/Resolved]
  - Product use issue [Unknown]
  - Disorientation [Recovered/Resolved]
  - Spinal fracture [Unknown]
  - Rib fracture [Unknown]
  - Fibromyalgia [Unknown]
  - Pain [Unknown]
